FAERS Safety Report 9522666 (Version 2)
Quarter: 2013Q4

REPORT INFORMATION
  Report Type: Spontaneous
  Country: AR (occurrence: AR)
  Receive Date: 20130913
  Receipt Date: 20131205
  Transmission Date: 20140711
  Serious: Yes (Other)
  Sender: FDA-Public Use
  Company Number: AR-AMGEN-ARGSP2013064526

PATIENT
  Age: 21 Year
  Sex: Female

DRUGS (3)
  1. ENBREL [Suspect]
     Indication: RHEUMATOID ARTHRITIS
     Dosage: 50 MG, WEEKLY
     Route: 065
     Dates: start: 20120903
  2. METHOTREXATE [Concomitant]
     Dosage: UNK
  3. ARTRAIT                            /00113801/ [Concomitant]
     Dosage: UNK

REACTIONS (5)
  - Cervix disorder [Recovered/Resolved]
  - Pain [Unknown]
  - Condition aggravated [Not Recovered/Not Resolved]
  - Decreased immune responsiveness [Recovering/Resolving]
  - Viral infection [Unknown]
